FAERS Safety Report 15283347 (Version 1)
Quarter: 2018Q3

REPORT INFORMATION
  Report Type: Spontaneous
  Country: US (occurrence: US)
  Receive Date: 20180731
  Receipt Date: 20180731
  Transmission Date: 20181010
  Serious: Yes (Hospitalization)
  Sender: FDA-Public Use
  Company Number: None

PATIENT
  Age: 61 Year
  Sex: Male
  Weight: 79.6 kg

DRUGS (3)
  1. LENALIDOMIDE (CC?5013) [Suspect]
     Active Substance: LENALIDOMIDE
     Dates: end: 20180713
  2. VELCADE [Suspect]
     Active Substance: BORTEZOMIB
     Dates: end: 20180713
  3. DEXAMETHASONE. [Suspect]
     Active Substance: DEXAMETHASONE
     Dates: end: 20180713

REACTIONS (2)
  - Haemorrhagic anaemia [None]
  - Clostridium difficile colitis [None]

NARRATIVE: CASE EVENT DATE: 20180714
